FAERS Safety Report 17027805 (Version 1)
Quarter: 2019Q4

REPORT INFORMATION
  Report Type: Spontaneous
  Country: GB (occurrence: GB)
  Receive Date: 20191113
  Receipt Date: 20191113
  Transmission Date: 20200122
  Serious: Yes (Other)
  Sender: FDA-Public Use
  Company Number: GB-ALLERGAN-1945895US

PATIENT
  Sex: Male
  Weight: 85.72 kg

DRUGS (2)
  1. BIMATOPROST UNK [Suspect]
     Active Substance: BIMATOPROST
     Indication: PRODUCT USED FOR UNKNOWN INDICATION
     Dosage: ONE DROP PER EYE - APPLIED TO BOTH EYES LATE IN THE EVENING, PRIOR TO SLEEP
     Route: 047
     Dates: start: 20191019, end: 20191025
  2. LUMIGAN [Suspect]
     Active Substance: BIMATOPROST
     Indication: INTRAOCULAR PRESSURE INCREASED
     Dosage: ONE DROP PER EYE - APPLIED TO BOTH EYES LATE IN THE EVENING, PRIOR TO SLEEP
     Route: 047
     Dates: start: 20191019, end: 20191026

REACTIONS (5)
  - Stress [Unknown]
  - Anxiety [Unknown]
  - Sleep disorder [Recovering/Resolving]
  - Discomfort [Unknown]
  - Hypertension [Recovering/Resolving]

NARRATIVE: CASE EVENT DATE: 20191019
